FAERS Safety Report 8062549-2 (Version None)
Quarter: 2012Q1

REPORT INFORMATION
  Report Type: 
  Country: None (occurrence: None)
  Receive Date: 20120123
  Receipt Date: 20120117
  Transmission Date: 20120608
  Serious: Yes (Other)
  Sender: FDA-Public Use
  Company Number: AT-TEVA-318539ISR

PATIENT
  Age: 61 Year
  Sex: Male
  Weight: 98 kg

DRUGS (1)
  1. INDOMETHACIN [Suspect]
     Dosage: 150 MILLIGRAM;
     Route: 048
     Dates: start: 20120101, end: 20120102

REACTIONS (2)
  - NAUSEA [None]
  - CARDIOVASCULAR DISORDER [None]
